FAERS Safety Report 7042183-3 (Version None)
Quarter: 2010Q4

REPORT INFORMATION
  Report Type: 
  Country: None (occurrence: None)
  Receive Date: 20101013
  Receipt Date: 20100726
  Transmission Date: 20110411
  Serious: No
  Sender: FDA-Public Use
  Company Number: US-ASTRAZENECA-2010SE35081

PATIENT
  Age: 68 Year
  Sex: Female

DRUGS (4)
  1. SYMBICORT [Suspect]
     Indication: ASTHMA
     Dosage: 160/4.5 UG ONE PUFF TWICE A DAY
     Route: 055
  2. SYMBICORT [Suspect]
     Dosage: 160/4.5 UG ONE PUFF A DAY
     Route: 055
  3. VENTOLIN [Concomitant]
     Dosage: ABOUT EVERY TWO HOURS
  4. HORMONE REPLACEMENT [Concomitant]

REACTIONS (2)
  - ASTHMA [None]
  - DRUG DOSE OMISSION [None]
